FAERS Safety Report 14838553 (Version 3)
Quarter: 2018Q2

REPORT INFORMATION
  Report Type: Report from Study
  Country: IT (occurrence: IT)
  Receive Date: 20180502
  Receipt Date: 20180628
  Transmission Date: 20180711
  Serious: Yes (Hospitalization)
  Sender: FDA-Public Use
  Company Number: IT-PFIZER INC-2018175726

PATIENT
  Age: 82 Year
  Sex: Female

DRUGS (12)
  1. REMERON [Suspect]
     Active Substance: MIRTAZAPINE
     Dosage: 30 MG, 1X/DAY
  2. ENALAPRIL [Suspect]
     Active Substance: ENALAPRIL
     Indication: HYPERTENSION
     Dosage: 20 MG, 1X/DAY
  3. MADOPAR [Concomitant]
     Active Substance: BENSERAZIDE HYDROCHLORIDE\LEVODOPA
     Dosage: UNK
     Route: 048
  4. TIKLID [Concomitant]
     Active Substance: TICLOPIDINE HYDROCHLORIDE
     Dosage: UNK
     Route: 048
  5. CONCOR [Suspect]
     Active Substance: BISOPROLOL FUMARATE
     Dosage: 10 MG, 1X/DAY
  6. ESIDREX [Suspect]
     Active Substance: HYDROCHLOROTHIAZIDE
     Dosage: 12.5 MG, 1X/DAY
  7. MOTILEX /00384302/ [Concomitant]
     Dosage: UNK
     Route: 048
     Dates: start: 20141214
  8. NORVASC [Suspect]
     Active Substance: AMLODIPINE BESYLATE
     Indication: HYPERTENSION
     Dosage: 10 MG, 1X/DAY
  9. TORVAST [Concomitant]
     Active Substance: ATORVASTATIN
     Indication: DYSLIPIDAEMIA
     Dosage: UNK
     Route: 048
     Dates: start: 20141214
  10. LENTO-KALIUM [Concomitant]
     Active Substance: POTASSIUM CHLORIDE
     Dosage: UNK
     Route: 048
  11. FISIOTENS [Suspect]
     Active Substance: MOXONIDINE
     Dosage: 0.4 MG, 1X/DAY
  12. LANSOPRAZOLE. [Concomitant]
     Active Substance: LANSOPRAZOLE
     Dosage: UNK
     Route: 048

REACTIONS (5)
  - Medication error [Unknown]
  - Hyponatraemia [Recovered/Resolved]
  - Sinus bradycardia [Recovered/Resolved]
  - Dehydration [Recovered/Resolved]
  - Hypotension [Recovered/Resolved]

NARRATIVE: CASE EVENT DATE: 20141214
